FAERS Safety Report 21120657 (Version 1)
Quarter: 2022Q3

REPORT INFORMATION
  Report Type: Spontaneous
  Country: US (occurrence: None)
  Receive Date: 20220722
  Receipt Date: 20220722
  Transmission Date: 20221026
  Serious: No
  Sender: FDA-Public Use
  Company Number: None

PATIENT
  Age: 72 Year
  Sex: Female
  Weight: 77.4 kg

DRUGS (12)
  1. CITROMA MAGNESIUM CITRATE [Suspect]
     Active Substance: MAGNESIUM CITRATE
     Indication: Bowel preparation
     Dates: start: 20220715, end: 20220715
  2. Simeastatin [Concomitant]
  3. HYDROCHLOROTHIAZIDE [Concomitant]
     Active Substance: HYDROCHLOROTHIAZIDE
  4. Eutayrox [Concomitant]
  5. Terbinasien [Concomitant]
  6. Methocareban [Concomitant]
  7. A lighter king patch [Concomitant]
  8. VITAMIN D [Concomitant]
     Active Substance: VITAMIN D NOS
  9. IRON [Concomitant]
     Active Substance: IRON
  10. BIOTIN [Concomitant]
     Active Substance: BIOTIN
  11. MAGNESIUM [Concomitant]
     Active Substance: MAGNESIUM
  12. TYLENOL [Concomitant]
     Active Substance: ACETAMINOPHEN

REACTIONS (1)
  - Nausea [None]

NARRATIVE: CASE EVENT DATE: 20220715
